FAERS Safety Report 8096766-2 (Version None)
Quarter: 2012Q1

REPORT INFORMATION
  Report Type: 
  Country: None (occurrence: None)
  Receive Date: 20120129
  Receipt Date: 20111220
  Transmission Date: 20120608
  Serious: No
  Sender: FDA-Public Use
  Company Number: US-ABBOTT-11P-163-0862330-00

PATIENT
  Age: 56 Year
  Sex: Female

DRUGS (24)
  1. FLEXERIL [Concomitant]
     Indication: INSOMNIA
  2. TRAZODONE HCL [Concomitant]
     Indication: INSOMNIA
  3. RED YEAST [Concomitant]
     Indication: PRODUCT USED FOR UNKNOWN INDICATION
  4. FENTANYL [Concomitant]
     Indication: PAIN
     Dosage: 100MCG PATCH EVERY 3 DAYS
  5. GINKO BILOBA [Concomitant]
     Indication: PRODUCT USED FOR UNKNOWN INDICATION
  6. PREDNISONE TAB [Concomitant]
     Indication: PRODUCT USED FOR UNKNOWN INDICATION
     Dosage: TAPER
     Dates: end: 20111009
  7. HUMIRA [Suspect]
     Dates: start: 20111209
  8. WELLBUTRIN XL [Concomitant]
     Indication: DEPRESSION
  9. PROZAC [Concomitant]
     Indication: DEPRESSION
  10. HUMIRA [Suspect]
     Dates: start: 20111007, end: 20111007
  11. ABILIFY [Concomitant]
     Indication: DEPRESSION
     Dosage: 1/2 TABLET DAILY
  12. NEURONTIN [Concomitant]
     Indication: INSOMNIA
  13. MELATONIN [Concomitant]
     Indication: PRODUCT USED FOR UNKNOWN INDICATION
     Dosage: AT NIGHT
  14. HUMIRA [Suspect]
     Indication: CROHN'S DISEASE
     Dates: start: 20110922, end: 20110922
  15. NEURONTIN [Concomitant]
     Indication: PAIN
  16. LUNESTA [Concomitant]
     Indication: POOR QUALITY SLEEP
  17. PREDNISONE TAB [Concomitant]
     Dosage: THEN AFTER COMPLETE PATIENT WILL NO LONGER TAKE PREDNISONE
  18. VICODIN [Concomitant]
     Indication: PAIN
     Dosage: 5/500, DAILY
  19. HUMIRA [Suspect]
  20. MULTI-VITAMINS [Concomitant]
     Indication: PRODUCT USED FOR UNKNOWN INDICATION
  21. COLAZAL [Concomitant]
     Indication: CROHN'S DISEASE
  22. NASONEX [Concomitant]
     Indication: PRODUCT USED FOR UNKNOWN INDICATION
     Dosage: 2 PUFF AT NIGHT
  23. PROTONIX [Concomitant]
     Indication: PRODUCT USED FOR UNKNOWN INDICATION
  24. ACTIFED [Concomitant]
     Indication: RHINITIS

REACTIONS (5)
  - JOINT SWELLING [None]
  - ASTHENIA [None]
  - OEDEMA PERIPHERAL [None]
  - LETHARGY [None]
  - FATIGUE [None]
